FAERS Safety Report 8528913-X (Version None)
Quarter: 2012Q3

REPORT INFORMATION
  Report Type: 
  Country: None (occurrence: None)
  Receive Date: 20120723
  Receipt Date: 20120717
  Transmission Date: 20120928
  Serious: No
  Sender: FDA-Public Use
  Company Number: US-PFIZER INC-2012173602

PATIENT
  Sex: Male
  Weight: 60.771 kg

DRUGS (2)
  1. XALKORI [Suspect]
     Indication: LUNG CARCINOMA CELL TYPE UNSPECIFIED STAGE IV
     Dosage: 250 MG, 2X/DAY
     Dates: start: 20120709, end: 20120711
  2. XALKORI [Suspect]
     Dosage: 250 MG, 2X/DAY
     Dates: start: 20120713, end: 20120714

REACTIONS (5)
  - OROPHARYNGEAL PAIN [None]
  - FEELING ABNORMAL [None]
  - MALAISE [None]
  - THROAT IRRITATION [None]
  - BURNING SENSATION [None]
